FAERS Safety Report 8317633-2 (Version None)
Quarter: 2012Q2

REPORT INFORMATION
  Report Type: 
  Country: None (occurrence: None)
  Receive Date: 20120427
  Receipt Date: 20110718
  Transmission Date: 20120825
  Serious: No
  Sender: FDA-Public Use
  Company Number: US-GLAXOSMITHKLINE-A0937085A

PATIENT
  Sex: Female
  Weight: 59.1 kg

DRUGS (7)
  1. COLACE [Concomitant]
  2. DONNATAL [Concomitant]
  3. ZOFRAN [Suspect]
     Indication: NAUSEA
     Dosage: 8MG AS REQUIRED
     Route: 048
     Dates: start: 20000101, end: 20110718
  4. HUMIRA [Concomitant]
  5. LIDOCAINE [Concomitant]
     Route: 062
  6. ACTIQ [Concomitant]
  7. LORAZEPAM [Concomitant]

REACTIONS (1)
  - SUBCUTANEOUS NODULE [None]
